FAERS Safety Report 8262334-2 (Version None)
Quarter: 2012Q2

REPORT INFORMATION
  Report Type: 
  Country: None (occurrence: None)
  Receive Date: 20120405
  Receipt Date: 20120323
  Transmission Date: 20120825
  Serious: Yes (Other)
  Sender: FDA-Public Use
  Company Number: PL-ROCHE-CID000000001986462

PATIENT
  Age: 74 Year
  Sex: Female
  Weight: 136.9 kg

DRUGS (11)
  1. HERCEPTIN [Suspect]
     Indication: BREAST CANCER
     Dosage: 126.4MG
     Dates: start: 20100525, end: 20110818
  2. ATORVASTATIN [Concomitant]
     Indication: BLOOD CHOLESTEROL
     Route: 065
     Dates: start: 20100423
  3. VALSARTAN [Concomitant]
     Indication: HYPERTENSION
     Route: 065
     Dates: start: 20100423
  4. LOPERAMIDE [Concomitant]
     Indication: PROPHYLAXIS
     Route: 065
     Dates: start: 20110721
  5. PACLITAXEL [Suspect]
     Indication: BREAST CANCER
     Dosage: 131.2 MG ,CYCLIC DOSE, DAYS 18,15 IN A 28 DAY CYCLE
     Route: 042
     Dates: start: 20100525, end: 20101201
  6. INDAPAMIDE [Concomitant]
     Indication: HYPERTENSION
     Route: 065
     Dates: start: 20100423
  7. LEVOTHYROXINE SODIUM [Concomitant]
     Indication: HYPOTHYROIDISM
     Route: 065
     Dates: start: 20100423
  8. GLICLAZIDE [Concomitant]
     Indication: DIABETES MELLITUS
     Route: 065
     Dates: start: 20100423
  9. RAMIPRIL [Concomitant]
     Indication: HYPERTENSION
     Route: 065
     Dates: start: 20100423
  10. BETAHISTINE [Concomitant]
     Indication: VERTIGO
     Route: 065
     Dates: start: 20100423
  11. ZOLPIDEM [Concomitant]
     Indication: PROPHYLAXIS
     Route: 065
     Dates: start: 20110519

REACTIONS (3)
  - ALANINE AMINOTRANSFERASE INCREASED [None]
  - BLOOD BILIRUBIN INCREASED [None]
  - ASPARTATE AMINOTRANSFERASE INCREASED [None]
